FAERS Safety Report 10969857 (Version 1)
Quarter: 2015Q1

REPORT INFORMATION
  Report Type: Spontaneous
  Country: JP (occurrence: None)
  Receive Date: 20150327
  Receipt Date: 20150327
  Transmission Date: 20150721
  Serious: Yes (Life-Threatening, Other)
  Sender: FDA-Public Use
  Company Number: 2015BEX00001

PATIENT
  Age: 79 Year
  Sex: Female

DRUGS (2)
  1. CARVEDILOL (CARVEDILOL) UNKNOWN [Suspect]
     Active Substance: CARVEDILOL
  2. CIBENZOLINE [Suspect]
     Active Substance: CIFENLINE

REACTIONS (4)
  - Syncope [None]
  - Blood pressure systolic decreased [None]
  - Altered state of consciousness [None]
  - Sinus bradycardia [None]
